FAERS Safety Report 8553976-5 (Version None)
Quarter: 2012Q3

REPORT INFORMATION
  Report Type: 
  Country: None (occurrence: None)
  Receive Date: 20120731
  Receipt Date: 20120716
  Transmission Date: 20120928
  Serious: Yes (Death, Other)
  Sender: FDA-Public Use
  Company Number: US-ARROW-2012-12955

PATIENT
  Age: 24 Year
  Sex: Female

DRUGS (2)
  1. PREDNISONE TAB [Suspect]
     Indication: LIVER TRANSPLANT
     Dosage: 20 MG, UNKNOWN
     Route: 065
  2. AZATHIOPRINE [Suspect]
     Indication: LIVER TRANSPLANT
     Dosage: UNK
     Route: 065

REACTIONS (6)
  - DRUG WITHDRAWAL SYNDROME [None]
  - TRANSPLANT REJECTION [None]
  - MATERNAL EXPOSURE DURING PREGNANCY [None]
  - CHOLESTASIS [None]
  - HEPATITIS [None]
  - ASPERGILLOSIS [None]
